FAERS Safety Report 19065770 (Version 1)
Quarter: 2021Q1

REPORT INFORMATION
  Report Type: Spontaneous
  Country: US (occurrence: US)
  Receive Date: 20210327
  Receipt Date: 20210327
  Transmission Date: 20210420
  Serious: No
  Sender: FDA-Public Use
  Company Number: US-009507513-2103USA004157

PATIENT

DRUGS (1)
  1. ALBUTEROL SULFATE. [Suspect]
     Active Substance: ALBUTEROL SULFATE
     Dosage: 2 PUFFS BY MOUTH AS NEEDED WITH A MAXIMUM OF OF 12 PUFFS PER DAY
     Route: 055

REACTIONS (2)
  - Product dose omission issue [Unknown]
  - Device malfunction [Unknown]
